FAERS Safety Report 21502994 (Version 1)
Quarter: 2022Q4

REPORT INFORMATION
  Report Type: Spontaneous
  Country: DE (occurrence: DE)
  Receive Date: 20221025
  Receipt Date: 20221025
  Transmission Date: 20230113
  Serious: Yes (Hospitalization, Other)
  Sender: FDA-Public Use
  Company Number: DE-ABBVIE-4170410

PATIENT
  Age: 56 Year
  Sex: Female

DRUGS (8)
  1. HUMIRA [Suspect]
     Active Substance: ADALIMUMAB
     Indication: Product used for unknown indication
     Dosage: FIRST ADMINISTRATION DATE WAS 2015
     Route: 058
  2. USTEKINUMAB [Suspect]
     Active Substance: USTEKINUMAB
     Indication: Product used for unknown indication
     Route: 065
  3. Salofalk [Concomitant]
     Indication: Product used for unknown indication
  4. Salofalk [Concomitant]
     Indication: Product used for unknown indication
  5. PREDNISOLONE [Concomitant]
     Active Substance: PREDNISOLONE
     Indication: Product used for unknown indication
  6. FILGOTINIB [Concomitant]
     Active Substance: FILGOTINIB
     Indication: Product used for unknown indication
     Dates: start: 202202
  7. VEDOLIZUMAB [Suspect]
     Active Substance: VEDOLIZUMAB
     Indication: Product used for unknown indication
     Dosage: STARTED 2019
     Route: 065
  8. INFLIXIMAB [Suspect]
     Active Substance: INFLIXIMAB
     Indication: Product used for unknown indication
     Route: 065

REACTIONS (23)
  - Medullary thyroid cancer [Unknown]
  - Clostridial infection [Unknown]
  - Gait inability [Unknown]
  - Pain [Unknown]
  - Grip strength decreased [Unknown]
  - Arthropathy [Unknown]
  - Swelling [Unknown]
  - Musculoskeletal stiffness [Unknown]
  - Vomiting [Unknown]
  - Nausea [Unknown]
  - Abdominal pain [Unknown]
  - Arthritis [Unknown]
  - Dizziness [Unknown]
  - Diarrhoea haemorrhagic [Not Recovered/Not Resolved]
  - Polyarthritis [Not Recovered/Not Resolved]
  - Oligoarthritis [Unknown]
  - Thrombosis [Unknown]
  - Arthropathy [Recovering/Resolving]
  - Gastrointestinal disorder [Not Recovered/Not Resolved]
  - Hyperthyroidism [Not Recovered/Not Resolved]
  - Enteropathic spondylitis [Unknown]
  - Colitis [Recovered/Resolved]
  - Impaired driving ability [Unknown]

NARRATIVE: CASE EVENT DATE: 20211001
